FAERS Safety Report 7118015-1 (Version None)
Quarter: 2010Q4

REPORT INFORMATION
  Report Type: 
  Country: None (occurrence: None)
  Receive Date: 20101118
  Receipt Date: 20101118
  Transmission Date: 20110411
  Serious: Yes (Other)
  Sender: FDA-Public Use
  Company Number: None

PATIENT
  Sex: Male
  Weight: 77.1115 kg

DRUGS (1)
  1. SEROQUEL [Suspect]
     Dosage: 25MG HS PO
     Route: 048
     Dates: start: 20101020, end: 20101020

REACTIONS (2)
  - HALLUCINATION [None]
  - SCREAMING [None]
